FAERS Safety Report 24131642 (Version 1)
Quarter: 2024Q3

REPORT INFORMATION
  Report Type: Spontaneous
  Country: US (occurrence: US)
  Receive Date: 20240724
  Receipt Date: 20240724
  Transmission Date: 20241016
  Serious: Yes (Other)
  Sender: TEVA
  Company Number: US-TEVA-VS-3222268

PATIENT
  Age: 51 Year
  Sex: Female

DRUGS (1)
  1. PROVIGIL [Suspect]
     Active Substance: MODAFINIL
     Route: 065

REACTIONS (5)
  - Hypertensive emergency [Unknown]
  - Oedema [Unknown]
  - Fatigue [Unknown]
  - Swelling [Unknown]
  - Loss of personal independence in daily activities [Unknown]
